FAERS Safety Report 5572545-2 (Version None)
Quarter: 2007Q4

REPORT INFORMATION
  Report Type: 
  Country: None (occurrence: None)
  Receive Date: 20071222
  Receipt Date: 20071214
  Transmission Date: 20080405
  Serious: Yes (Life-Threatening)
  Sender: FDA-Public Use
  Company Number: US-PFIZER INC-2007085027

PATIENT
  Sex: Male
  Weight: 78.5 kg

DRUGS (1)
  1. LIPITOR [Suspect]
     Indication: HYPERLIPIDAEMIA
     Dates: start: 20070918, end: 20070921

REACTIONS (3)
  - CHEST PAIN [None]
  - ILL-DEFINED DISORDER [None]
  - LOW DENSITY LIPOPROTEIN INCREASED [None]
